FAERS Safety Report 7346565-1 (Version None)
Quarter: 2011Q1

REPORT INFORMATION
  Report Type: 
  Country: None (occurrence: None)
  Receive Date: 20110311
  Receipt Date: 20110228
  Transmission Date: 20110831
  Serious: Yes (Life-Threatening, Hospitalization)
  Sender: FDA-Public Use
  Company Number: JP-JNJFOC-20101200226

PATIENT
  Sex: Female
  Weight: 51 kg

DRUGS (11)
  1. INFLIXIMAB, RECOMBINANT [Suspect]
     Route: 042
  2. IRSOGLADINE MALEATE [Concomitant]
     Route: 048
  3. LEBENIN [Concomitant]
     Route: 048
  4. LOXONIN [Concomitant]
     Route: 048
  5. PATELL [Concomitant]
  6. RADEN [Concomitant]
     Route: 048
  7. INFLIXIMAB, RECOMBINANT [Suspect]
     Indication: RHEUMATOID ARTHRITIS
     Route: 042
  8. METHOTREXATE [Suspect]
     Indication: RHEUMATOID ARTHRITIS
     Route: 048
  9. BUCILLAMINE [Concomitant]
     Route: 048
  10. INFLIXIMAB, RECOMBINANT [Suspect]
     Route: 042
  11. ITOPRIDE HYDROCHLORIDE [Concomitant]
     Route: 048

REACTIONS (3)
  - PNEUMOCYSTIS JIROVECI PNEUMONIA [None]
  - PNEUMONIA FUNGAL [None]
  - PLEURAL EFFUSION [None]
